FAERS Safety Report 18265909 (Version 1)
Quarter: 2020Q3

REPORT INFORMATION
  Report Type: Spontaneous
  Country: FR (occurrence: FR)
  Receive Date: 20200915
  Receipt Date: 20200915
  Transmission Date: 20201103
  Serious: Yes (Hospitalization)
  Sender: FDA-Public Use
  Company Number: FR-TEVA-2020-FR-1821220

PATIENT
  Age: 67 Year
  Sex: Male

DRUGS (2)
  1. TRAMADOL BASE [Suspect]
     Active Substance: TRAMADOL
     Indication: SCIATICA
     Route: 048
     Dates: start: 20200626, end: 20200630
  2. DUOPLAVIN [Suspect]
     Active Substance: ASPIRIN\CLOPIDOGREL
     Indication: CARDIOVASCULAR DISORDER
     Route: 048
     Dates: start: 20200630

REACTIONS (2)
  - Melaena [Recovered/Resolved]
  - Abdominal pain [Recovered/Resolved]

NARRATIVE: CASE EVENT DATE: 202006
